FAERS Safety Report 7246974-5 (Version None)
Quarter: 2011Q1

REPORT INFORMATION
  Report Type: 
  Country: None (occurrence: None)
  Receive Date: 20110127
  Receipt Date: 20110124
  Transmission Date: 20110831
  Serious: Yes (Other)
  Sender: FDA-Public Use
  Company Number: US-ABBOTT-11P-163-0700266-00

PATIENT
  Sex: Female
  Weight: 90.8 kg

DRUGS (3)
  1. ADDERALL 10 [Concomitant]
     Indication: PRODUCT USED FOR UNKNOWN INDICATION
  2. SIMCOR [Suspect]
     Indication: BLOOD CHOLESTEROL
     Dates: start: 20101201, end: 20110120
  3. WELLBUTRIN [Concomitant]
     Indication: PRODUCT USED FOR UNKNOWN INDICATION

REACTIONS (3)
  - APPENDICITIS [None]
  - WOUND DEHISCENCE [None]
  - PAIN [None]
